FAERS Safety Report 4349738-5 (Version None)
Quarter: 2004Q2

REPORT INFORMATION
  Report Type: 
  Country: None (occurrence: None)
  Receive Date: 20040426
  Receipt Date: 20040412
  Transmission Date: 20050107
  Serious: Yes (Hospitalization, Other)
  Sender: FDA-Public Use
  Company Number: 2004007974

PATIENT
  Age: 68 Year
  Sex: Female

DRUGS (8)
  1. VFEND [Suspect]
     Indication: FUNGAL INFECTION
     Dosage: 400 MG (BID), INTRAVENOUS
     Route: 042
     Dates: start: 20040118, end: 20040119
  2. GLIPIZIDE [Suspect]
     Indication: DIABETES MELLITUS
     Dosage: 5 MG (DAILY), ORAL
     Route: 048
     Dates: start: 20020101, end: 20040101
  3. LISINOPRIL [Concomitant]
  4. SIMVASTATIN [Concomitant]
  5. FUROSEMIDE [Concomitant]
  6. METRONIDAZOLE [Concomitant]
  7. VANCOMYCIN [Concomitant]
  8. ALL OTHER THERAPEUTIC PRODUCT (ALL OTHER THERAPEUTIC PRODUCTS) [Concomitant]

REACTIONS (4)
  - DRUG INTERACTION [None]
  - FEBRILE NEUTROPENIA [None]
  - HYPOGLYCAEMIA [None]
  - HYPOGLYCAEMIC COMA [None]
